FAERS Safety Report 8193399-4 (Version None)
Quarter: 2012Q1

REPORT INFORMATION
  Report Type: 
  Country: None (occurrence: None)
  Receive Date: 20120308
  Receipt Date: 20120228
  Transmission Date: 20120608
  Serious: Yes (Other)
  Sender: FDA-Public Use
  Company Number: US-SANOFI-AVENTIS-2011SA045523

PATIENT
  Age: 82 Year
  Sex: Female

DRUGS (9)
  1. ASPIRIN [Concomitant]
  2. PRAVACHOL [Concomitant]
     Dates: start: 20110710
  3. CARVEDILOL [Concomitant]
     Dates: start: 20110708
  4. METFORMIN HYDROCHLORIDE [Concomitant]
  5. DILTIAZEM HCL [Concomitant]
     Route: 051
     Dates: start: 20110708
  6. MULTAQ [Suspect]
     Indication: ARRHYTHMIA
     Route: 048
     Dates: start: 20110708, end: 20110711
  7. DABIGATRAN ETEXILATE [Suspect]
     Route: 065
  8. LEVOTHYROXINE SODIUM [Concomitant]
  9. LISINOPRIL [Concomitant]

REACTIONS (6)
  - BLOOD UREA INCREASED [None]
  - BLOOD CREATININE INCREASED [None]
  - HEPATOCELLULAR INJURY [None]
  - CONFUSIONAL STATE [None]
  - HEPATORENAL FAILURE [None]
  - MENTAL STATUS CHANGES [None]
